FAERS Safety Report 4405038-6 (Version None)
Quarter: 2004Q2

REPORT INFORMATION
  Report Type: 
  Country: None (occurrence: None)
  Receive Date: 20040621
  Receipt Date: 20040511
  Transmission Date: 20050107
  Serious: No
  Sender: FDA-Public Use
  Company Number: A-US2004-06182

PATIENT
  Age: 66 Year

DRUGS (1)
  1. TRACLEER [Suspect]
     Dosage: 125 MG, BID, ORAL
     Route: 048
     Dates: start: 20040301

REACTIONS (1)
  - CONSTIPATION [None]
